FAERS Safety Report 6847576-2 (Version None)
Quarter: 2010Q3

REPORT INFORMATION
  Report Type: 
  Country: None (occurrence: None)
  Receive Date: 20100716
  Receipt Date: 20100708
  Transmission Date: 20110219
  Serious: Yes (Other)
  Sender: FDA-Public Use
  Company Number: US-PFIZER INC-2010060977

PATIENT
  Sex: Female
  Weight: 72.1 kg

DRUGS (3)
  1. SUTENT [Suspect]
     Indication: RENAL CANCER
     Dosage: 12.5 MG, 4X/DAY, 4 WEEKS ON 2 WEEKS OFF
     Route: 048
     Dates: start: 20100507
  2. SUTENT [Suspect]
     Indication: RENAL CELL CARCINOMA
  3. VITAMINS [Concomitant]
     Dosage: UNK

REACTIONS (1)
  - HAEMATOMA [None]
